FAERS Safety Report 5839096-9 (Version None)
Quarter: 2008Q3

REPORT INFORMATION
  Report Type: 
  Country: None (occurrence: None)
  Receive Date: 20080808
  Receipt Date: 20080730
  Transmission Date: 20090109
  Serious: Yes (Hospitalization, Congenital Anomaly, Other)
  Sender: FDA-Public Use
  Company Number: US-PFIZER INC-2007095292

PATIENT
  Sex: Female

DRUGS (3)
  1. ZOLOFT [Suspect]
     Indication: DEPRESSION
     Route: 064
     Dates: start: 20041101, end: 20060101
  2. ZOLOFT [Suspect]
     Indication: ANXIETY
  3. SYNTHROID [Concomitant]
     Indication: THYROID DISORDER

REACTIONS (7)
  - AORTIC STENOSIS [None]
  - DEVELOPMENTAL DELAY [None]
  - DRUG EXPOSURE DURING PREGNANCY [None]
  - EXOMPHALOS [None]
  - LUNG DISORDER [None]
  - MITRAL VALVE PROLAPSE [None]
  - SCAR [None]
